FAERS Safety Report 8772679 (Version 2)
Quarter: 2012Q4

REPORT INFORMATION
  Report Type: 
  Country: US (occurrence: US)
  Receive Date: 20120905
  Receipt Date: 20120917
  Transmission Date: 20130627
  Serious: Yes (Death)
  Sender: FDA-Public Use
  Company Number: US-GILEAD-2012-0060618

PATIENT
  Sex: Female

DRUGS (2)
  1. LETAIRIS [Suspect]
     Indication: PULMONARY HYPERTENSION
     Dosage: 5 mg, QD
     Route: 048
     Dates: start: 201205
  2. LETAIRIS [Suspect]
     Indication: SCLERODERMA
     Dosage: UNK UNK, QD
     Dates: start: 20120629

REACTIONS (1)
  - Neoplasm malignant [Fatal]
